FAERS Safety Report 6213126-7 (Version None)
Quarter: 2009Q2

REPORT INFORMATION
  Report Type: 
  Country: None (occurrence: None)
  Receive Date: 20090601
  Receipt Date: 20090601
  Transmission Date: 20091009
  Serious: Yes (Hospitalization)
  Sender: FDA-Public Use
  Company Number: None

PATIENT
  Sex: Female
  Weight: 69.09 kg

DRUGS (4)
  1. CISPLATIN [Suspect]
     Dosage: 82 MG
  2. DOXORUBICIN HYDROCHLORIDE [Suspect]
     Dosage: 49 MG
  3. G-CSF (FILGRASTIM, AMGEN) [Suspect]
     Dosage: 6 MG
  4. TAXOL [Suspect]
     Dosage: 204 MG

REACTIONS (8)
  - ANAEMIA [None]
  - DECREASED APPETITE [None]
  - DIARRHOEA [None]
  - DIZZINESS [None]
  - FLATULENCE [None]
  - HYPOKALAEMIA [None]
  - NAUSEA [None]
  - VOMITING [None]
